FAERS Safety Report 14581986 (Version 1)
Quarter: 2018Q1

REPORT INFORMATION
  Report Type: Spontaneous
  Country: US (occurrence: US)
  Receive Date: 20180228
  Receipt Date: 20180228
  Transmission Date: 20180509
  Serious: Yes (Other)
  Sender: FDA-Public Use
  Company Number: US-GLAXOSMITHKLINE-US2018030286

PATIENT
  Sex: Female

DRUGS (6)
  1. ZONEGRAN [Concomitant]
     Active Substance: ZONISAMIDE
  2. LAMOTRIGINE PROLONGED-RELEASE TABLET [Suspect]
     Active Substance: LAMOTRIGINE
     Indication: EPILEPSY
     Dosage: UNK
  3. BRIVIACT [Concomitant]
     Active Substance: BRIVARACETAM
  4. DEPAKOTE [Concomitant]
     Active Substance: DIVALPROEX SODIUM
  5. LAMICTAL XR [Suspect]
     Active Substance: LAMOTRIGINE
     Indication: EPILEPSY
     Dosage: UNK
     Dates: start: 2005
  6. CANNABIDIOL [Concomitant]
     Active Substance: CANNABIDIOL

REACTIONS (26)
  - Tremor [Not Recovered/Not Resolved]
  - Saliva analysis abnormal [Not Recovered/Not Resolved]
  - pH urine increased [Not Recovered/Not Resolved]
  - Vulvovaginal burning sensation [Not Recovered/Not Resolved]
  - Vaginal infection [Unknown]
  - Vaginal discharge [Not Recovered/Not Resolved]
  - Contusion [Not Recovered/Not Resolved]
  - Anxiety [Not Recovered/Not Resolved]
  - Flushing [Not Recovered/Not Resolved]
  - Tinnitus [Not Recovered/Not Resolved]
  - Panic reaction [Not Recovered/Not Resolved]
  - Blood ketone body decreased [Not Recovered/Not Resolved]
  - Bacterial infection [Unknown]
  - Ill-defined disorder [Not Recovered/Not Resolved]
  - Halo vision [Not Recovered/Not Resolved]
  - Fungal infection [Unknown]
  - Vulvovaginal inflammation [Not Recovered/Not Resolved]
  - Condition aggravated [Not Recovered/Not Resolved]
  - Hiccups [Not Recovered/Not Resolved]
  - Balance disorder [Not Recovered/Not Resolved]
  - Skin tightness [Not Recovered/Not Resolved]
  - Dizziness [Not Recovered/Not Resolved]
  - Gait disturbance [Unknown]
  - Seizure [Recovered/Resolved]
  - Nausea [Not Recovered/Not Resolved]
  - White blood cell count decreased [Not Recovered/Not Resolved]

NARRATIVE: CASE EVENT DATE: 2013
